FAERS Safety Report 6068947-0 (Version None)
Quarter: 2009Q1

REPORT INFORMATION
  Report Type: 
  Country: None (occurrence: None)
  Receive Date: 20090206
  Receipt Date: 20090113
  Transmission Date: 20090719
  Serious: Yes (Hospitalization)
  Sender: FDA-Public Use
  Company Number: CA-BRISTOL-MYERS SQUIBB COMPANY-14407530

PATIENT
  Age: 50 Year
  Sex: Male

DRUGS (11)
  1. ORENCIA [Suspect]
     Indication: RHEUMATOID ARTHRITIS
     Dosage: 7DOSES=7ANOIS
     Route: 042
     Dates: start: 20080301, end: 20080901
  2. METHOTREXATE [Concomitant]
     Route: 048
  3. PREDNISONE [Concomitant]
  4. CELEBREX [Concomitant]
  5. HYDROXYCHLOROQUINE SULFATE [Concomitant]
  6. TRAMACET [Concomitant]
     Dosage: 1DF- 1TABS ,4-6HRS
  7. VIAGRA [Concomitant]
  8. LOVAZA [Concomitant]
  9. GLUCOSAMINE [Concomitant]
  10. CHONDROITIN [Concomitant]
  11. FOLIC ACID [Concomitant]

REACTIONS (1)
  - VASCULITIS [None]
